FAERS Safety Report 7890947-6 (Version None)
Quarter: 2011Q4

REPORT INFORMATION
  Report Type: 
  Country: None (occurrence: None)
  Receive Date: 20111103
  Receipt Date: 20110727
  Transmission Date: 20120403
  Serious: No
  Sender: FDA-Public Use
  Company Number: US-AMGEN-USASP2011038210

PATIENT
  Age: 48 Year
  Sex: Male

DRUGS (2)
  1. ENBREL [Suspect]
     Indication: ANKYLOSING SPONDYLITIS
     Dosage: 50 MG, QWK
     Dates: start: 20110712
  2. PREDNISONE [Concomitant]
     Dosage: UNK
     Dates: end: 20110724

REACTIONS (3)
  - ANKYLOSING SPONDYLITIS [None]
  - MOBILITY DECREASED [None]
  - INSOMNIA [None]
